FAERS Safety Report 8598457-8 (Version None)
Quarter: 2012Q3

REPORT INFORMATION
  Report Type: 
  Country: None (occurrence: None)
  Receive Date: 20120816
  Receipt Date: 20120803
  Transmission Date: 20120928
  Serious: Yes (Other)
  Sender: FDA-Public Use
  Company Number: IE-ROCHE-1065276

PATIENT
  Sex: Male

DRUGS (1)
  1. ISOTRETINOIN [Suspect]
     Indication: ACNE
     Route: 048
     Dates: start: 19980101

REACTIONS (8)
  - ARTHRALGIA [None]
  - SWELLING FACE [None]
  - HEADACHE [None]
  - FATIGUE [None]
  - LOCAL SWELLING [None]
  - MYALGIA [None]
  - DEPRESSION [None]
  - AFFECT LABILITY [None]
